FAERS Safety Report 17061009 (Version 1)
Quarter: 2019Q4

REPORT INFORMATION
  Report Type: Spontaneous
  Country: US (occurrence: US)
  Receive Date: 20191121
  Receipt Date: 20191121
  Transmission Date: 20200122
  Serious: No
  Sender: FDA-Public Use
  Company Number: US-SA-2019SA316490

PATIENT
  Sex: Female

DRUGS (6)
  1. KAOPECTATE [Suspect]
     Active Substance: BISMUTH SUBSALICYLATE
     Indication: GLOSSODYNIA
     Dosage: UNK
     Dates: start: 2019
  2. AFINITOR [Concomitant]
     Active Substance: EVEROLIMUS
  3. DIPHENHYDRAMINE HYDROCHLORIDE. [Suspect]
     Active Substance: DIPHENHYDRAMINE HYDROCHLORIDE
     Indication: GLOSSODYNIA
  4. BENADRYL [Concomitant]
     Active Substance: DIPHENHYDRAMINE HYDROCHLORIDE
  5. KAOPECTATE [Suspect]
     Active Substance: BISMUTH SUBSALICYLATE
     Indication: GLOSSODYNIA
  6. DIPHENHYDRAMINE HYDROCHLORIDE. [Suspect]
     Active Substance: DIPHENHYDRAMINE HYDROCHLORIDE
     Indication: GLOSSODYNIA
     Dosage: UNK
     Dates: start: 2019

REACTIONS (2)
  - Drug ineffective [Unknown]
  - Onychoclasis [Unknown]

NARRATIVE: CASE EVENT DATE: 2019
